FAERS Safety Report 10162072 (Version 1)
Quarter: 2014Q2

REPORT INFORMATION
  Report Type: Spontaneous
  Country: US (occurrence: US)
  Receive Date: 20140509
  Receipt Date: 20140509
  Transmission Date: 20141212
  Serious: Yes (Other)
  Sender: FDA-Public Use
  Company Number: US-JNJCP-30000218094

PATIENT
  Sex: Female
  Weight: 8 kg

DRUGS (2)
  1. AVEENO BABY ECZEMA THERAPY MOISTURIZING CREAM [Suspect]
     Indication: ECZEMA
     Dosage: ABOUT THE SIZE OF A QUARTER AMOUNT, EVERY OTHER DAY
     Route: 061
     Dates: end: 20140424
  2. UNSPECIFIED PRODUCTS [Suspect]
     Indication: PRODUCT USED FOR UNKNOWN INDICATION
     Route: 061

REACTIONS (3)
  - Application site rash [Recovering/Resolving]
  - Wheezing [Recovered/Resolved]
  - Application site papules [Not Recovered/Not Resolved]
